FAERS Safety Report 4613734-0 (Version None)
Quarter: 2005Q1

REPORT INFORMATION
  Report Type: 
  Country: None (occurrence: None)
  Receive Date: 20050321
  Receipt Date: 20050302
  Transmission Date: 20050727
  Serious: Yes (Hospitalization)
  Sender: FDA-Public Use
  Company Number: FR-BOEHRINGER INGELHEIM PHARMACEUTICALS, INC.-2005-FF-00142FF

PATIENT
  Age: 61 Year
  Sex: Female

DRUGS (4)
  1. CATAPRES [Suspect]
     Route: 048
     Dates: end: 20050214
  2. LEVOTHYROX [Concomitant]
     Route: 048
  3. DOXYCYLCINE [Concomitant]
     Route: 048
     Dates: end: 20050213
  4. ARIMIDEX [Concomitant]
     Route: 048

REACTIONS (2)
  - CONDITION AGGRAVATED [None]
  - THROMBOCYTOPENIA [None]
